FAERS Safety Report 11256187 (Version 1)
Quarter: 2015Q3

REPORT INFORMATION
  Report Type: Spontaneous
  Country: US (occurrence: US)
  Receive Date: 20150709
  Receipt Date: 20150709
  Transmission Date: 20151125
  Serious: Yes (Other)
  Sender: FDA-Public Use
  Company Number: US-B.I. PHARMACEUTICALS,INC./RIDGEFIELD-2015-BI-35709BP

PATIENT
  Sex: Male
  Weight: 88 kg

DRUGS (2)
  1. ZANTAC [Suspect]
     Active Substance: RANITIDINE HYDROCHLORIDE
     Indication: SKIN IRRITATION
     Dosage: 300 MG
     Route: 048
     Dates: start: 2010, end: 201503
  2. ZANTAC [Suspect]
     Active Substance: RANITIDINE HYDROCHLORIDE
     Indication: GASTROOESOPHAGEAL REFLUX DISEASE
     Dosage: 600 MG
     Route: 048
     Dates: start: 201503

REACTIONS (8)
  - Gastrostomy tube site complication [Not Recovered/Not Resolved]
  - Incorrect drug administration duration [Unknown]
  - Off label use [Unknown]
  - Amyotrophic lateral sclerosis [Not Recovered/Not Resolved]
  - Off label use [Unknown]
  - Activities of daily living impaired [Not Recovered/Not Resolved]
  - Choking [Not Recovered/Not Resolved]
  - Diaphragmatic disorder [Not Recovered/Not Resolved]

NARRATIVE: CASE EVENT DATE: 2010
